FAERS Safety Report 9546623 (Version 7)
Quarter: 2014Q2

REPORT INFORMATION
  Report Type: Report from Study
  Country: US (occurrence: US)
  Receive Date: 20130924
  Receipt Date: 20140507
  Transmission Date: 20141212
  Serious: Yes (Hospitalization)
  Sender: FDA-Public Use
  Company Number: US-009507513-1309USA010007

PATIENT
  Age: 52 Year
  Sex: Female

DRUGS (8)
  1. VICTRELIS [Suspect]
     Indication: CHRONIC HEPATITIS C
     Dosage: 2400 MG
     Route: 065
     Dates: start: 20130301, end: 20130316
  2. VICTRELIS [Suspect]
     Dosage: UNK
     Route: 065
  3. REBETOL [Suspect]
     Indication: CHRONIC HEPATITIS C
     Dosage: 800 MG, UNK
     Route: 065
     Dates: start: 20130201
  4. REBETOL [Suspect]
     Dosage: 600 MG, UNK
     Route: 065
     Dates: start: 201303
  5. REBETOL [Suspect]
     Dosage: 400 MG, QD
     Route: 065
  6. REBETOL [Suspect]
     Dosage: 200 MG, QD
     Route: 065
  7. REBETOL [Suspect]
     Dosage: 400 MG, QD
     Route: 065
     Dates: start: 20130916
  8. PEGINTERFERON ALFA-2A [Suspect]
     Indication: CHRONIC HEPATITIS C
     Dosage: 180 MICROGRAM, UNK
     Route: 065
     Dates: start: 20130131

REACTIONS (1)
  - Anaemia [Recovered/Resolved with Sequelae]
